FAERS Safety Report 23520016 (Version 1)
Quarter: 2024Q1

REPORT INFORMATION
  Report Type: Spontaneous
  Country: US (occurrence: US)
  Receive Date: 20240214
  Receipt Date: 20240214
  Transmission Date: 20240409
  Serious: Yes (Death, Hospitalization)
  Sender: FDA-Public Use
  Company Number: US-ABBVIE-5638703

PATIENT
  Age: 61 Year
  Sex: Male
  Weight: 104 kg

DRUGS (1)
  1. LUPRON [Suspect]
     Active Substance: LEUPROLIDE ACETATE
     Indication: Prostate cancer metastatic
     Dosage: UNKNOWN
     Route: 030

REACTIONS (7)
  - Prostate cancer [Fatal]
  - Cerebral haemorrhage [Fatal]
  - Fall [Fatal]
  - Craniocerebral injury [Fatal]
  - Cerebrovascular accident [Fatal]
  - White blood cell count decreased [Fatal]
  - Red blood cell count decreased [Fatal]

NARRATIVE: CASE EVENT DATE: 20231101
